FAERS Safety Report 11898503 (Version 1)
Quarter: 2016Q1

REPORT INFORMATION
  Report Type: Spontaneous
  Country: US (occurrence: US)
  Receive Date: 20160108
  Receipt Date: 20160108
  Transmission Date: 20160526
  Serious: No
  Sender: FDA-Public Use
  Company Number: US-JNJFOC-20160101375

PATIENT
  Sex: Male

DRUGS (1)
  1. DURAGESIC [Suspect]
     Active Substance: FENTANYL
     Indication: ACCIDENT AT WORK
     Route: 062

REACTIONS (6)
  - Therapeutic response decreased [Unknown]
  - Therapeutic response unexpected [Unknown]
  - Depressed mood [Unknown]
  - Apathy [Unknown]
  - Drug dose omission [Unknown]
  - Product quality issue [Unknown]
